FAERS Safety Report 6025583-X (Version None)
Quarter: 2008Q4

REPORT INFORMATION
  Report Type: 
  Country: None (occurrence: None)
  Receive Date: 20081231
  Receipt Date: 20081124
  Transmission Date: 20090506
  Serious: Yes (Hospitalization)
  Sender: FDA-Public Use
  Company Number: US-GENENTECH-272397

PATIENT
  Sex: Female
  Weight: 41.36 kg

DRUGS (2)
  1. SOMATROPIN [Suspect]
     Indication: TURNER'S SYNDROME
     Dosage: 2.4 MG, QD
     Route: 058
     Dates: start: 19980213
  2. VIVELLE-DOT [Concomitant]
     Indication: DRUG USE FOR UNKNOWN INDICATION
     Dosage: 50 A?G, 1/WEEK
     Route: 062
     Dates: start: 20080429

REACTIONS (1)
  - CROHN'S DISEASE [None]
